FAERS Safety Report 5096656-3 (Version None)
Quarter: 2006Q3

REPORT INFORMATION
  Report Type: 
  Country: None (occurrence: None)
  Receive Date: 20060831
  Receipt Date: 20060821
  Transmission Date: 20061208
  Serious: Yes (Hospitalization)
  Sender: FDA-Public Use
  Company Number: GXKR2006GB05047

PATIENT
  Age: 70 Year
  Sex: 0

DRUGS (6)
  1. CLARITHROMYCIN [Suspect]
     Dosage: 250 MG, BID,ORAL
     Route: 048
     Dates: start: 20060619, end: 20060623
  2. CALCICHEW-DE (CALCIUM CARBONATE, COLECALCIFEROL) [Concomitant]
  3. CO-CODAMOL (CODEINE PHOSPHATE, PARACETAMOL) [Concomitant]
  4. COMBIVENT /GFR/ (IPRATROPIUM BROMIDE, SALBUTAMOL SULFATE) [Concomitant]
  5. PREDNISOLOEN (PREDNISOLONE) [Concomitant]
  6. RISEDRONATE SODIUM [Concomitant]

REACTIONS (1)
  - PURPURA [None]
